FAERS Safety Report 12198845 (Version 1)
Quarter: 2016Q1

REPORT INFORMATION
  Report Type: Spontaneous
  Country: US (occurrence: US)
  Receive Date: 20160322
  Receipt Date: 20160322
  Transmission Date: 20160526
  Serious: No
  Sender: FDA-Public Use
  Company Number: US-AUROBINDO-AUR-APU-2016-02704

PATIENT
  Age: 52 Year

DRUGS (1)
  1. DEXAMFETAMINE+AMFETAMINE [Suspect]
     Active Substance: AMPHETAMINE\DEXTROAMPHETAMINE
     Indication: PRODUCT USED FOR UNKNOWN INDICATION
     Route: 065

REACTIONS (5)
  - Product substitution issue [Unknown]
  - Nausea [Unknown]
  - Lethargy [Unknown]
  - Malaise [Unknown]
  - Migraine [Unknown]
